FAERS Safety Report 5232905-6 (Version None)
Quarter: 2007Q1

REPORT INFORMATION
  Report Type: 
  Country: None (occurrence: None)
  Receive Date: 20070207
  Receipt Date: 20070130
  Transmission Date: 20070707
  Serious: Yes (Hospitalization)
  Sender: FDA-Public Use
  Company Number: FR-BAXTER-2007BH001560

PATIENT
  Sex: Male

DRUGS (1)
  1. IMMUNE GLOBULIN INTRAVENOUS (HUMAN) [Suspect]
     Indication: NEUROPATHY
     Route: 042
     Dates: start: 20070128, end: 20070130

REACTIONS (2)
  - ERYTHEMA [None]
  - PRURITUS [None]
